FAERS Safety Report 18684128 (Version 1)
Quarter: 2020Q4

REPORT INFORMATION
  Report Type: Spontaneous
  Country: FR (occurrence: FR)
  Receive Date: 20201230
  Receipt Date: 20201230
  Transmission Date: 20210114
  Serious: Yes (Other)
  Sender: FDA-Public Use
  Company Number: FR-MYLANLABS-2020M1106194

PATIENT
  Age: 39 Year
  Sex: Male

DRUGS (1)
  1. BUPRENORPHINE. [Suspect]
     Active Substance: BUPRENORPHINE
     Indication: PRODUCT USED FOR UNKNOWN INDICATION
     Dosage: AT PRESENTATION, HE HAD BEEN RECEIVING WEANING DOSES OF IV DRUGS FOR 3 YEARS
     Route: 042

REACTIONS (8)
  - Venous thrombosis [Unknown]
  - Skin abrasion [Unknown]
  - Subcutaneous abscess [Unknown]
  - Drug abuse [Unknown]
  - Drug dependence [Unknown]
  - Peripheral swelling [Unknown]
  - Dermo-hypodermitis [Unknown]
  - Scar [Unknown]
